FAERS Safety Report 26056143 (Version 1)
Quarter: 2025Q4

REPORT INFORMATION
  Report Type: Spontaneous
  Country: US (occurrence: US)
  Receive Date: 20251118
  Receipt Date: 20251118
  Transmission Date: 20260117
  Serious: No
  Sender: TOLMAR
  Company Number: US-Tolmar-TLM-2025-08477

PATIENT
  Age: 54 Year
  Sex: Male

DRUGS (2)
  1. JATENZO [Suspect]
     Active Substance: TESTOSTERONE UNDECANOATE
     Indication: Hyperhidrosis
  2. GLYCOPYRROLATE [Concomitant]
     Active Substance: GLYCOPYRROLATE
     Indication: Hyperhidrosis

REACTIONS (2)
  - Therapeutic response unexpected [Unknown]
  - Off label use [Unknown]
